FAERS Safety Report 24251257 (Version 1)
Quarter: 2024Q3

REPORT INFORMATION
  Report Type: Spontaneous
  Country: US (occurrence: None)
  Receive Date: 20240826
  Receipt Date: 20240826
  Transmission Date: 20241016
  Serious: Yes (Hospitalization)
  Sender: Public
  Company Number: None

PATIENT
  Sex: Male

DRUGS (11)
  1. LENALIDOMIDE [Suspect]
     Active Substance: LENALIDOMIDE
     Indication: Plasma cell myeloma
     Dosage: OTHER FREQUENCY : EVERY DAY ON DAYS 1-21 EVERY 28 DAYS;?
     Route: 048
     Dates: start: 20230502
  2. ASPIRIN [Concomitant]
     Active Substance: ASPIRIN
  3. CEPHALEXIN [Concomitant]
  4. CLOBETASOL CRE [Concomitant]
  5. CLOBETASOL [Concomitant]
     Active Substance: CLOBETASOL
  6. DEXAMETHASON [Concomitant]
  7. MOUTH RINSE SOL [Concomitant]
  8. MULTI-VITAMIN [Concomitant]
  9. OMEPRAZOLE [Concomitant]
     Active Substance: OMEPRAZOLE
  10. ONDANSETRON [Concomitant]
  11. PHENYTOIN [Concomitant]
     Active Substance: PHENYTOIN

REACTIONS (1)
  - Skin cancer [None]
